FAERS Safety Report 15364600 (Version 1)
Quarter: 2018Q3

REPORT INFORMATION
  Report Type: Report from Study
  Country: US (occurrence: US)
  Receive Date: 20180910
  Receipt Date: 20180910
  Transmission Date: 20181010
  Serious: Yes (Other)
  Sender: FDA-Public Use
  Company Number: US-ROCHE-2180304

PATIENT
  Age: 40 Year
  Sex: Female
  Weight: 80.1 kg

DRUGS (2)
  1. BEVACIZUMAB. [Suspect]
     Active Substance: BEVACIZUMAB
     Indication: CERVIX CANCER METASTATIC
     Dosage: LAST DOSE ADMINISTEREED WAS ON 12/JAN/2018.?CYCLE= 21 DAYS
     Route: 042
     Dates: start: 20171201, end: 20180112
  2. ATEZOLIZUMAB. [Suspect]
     Active Substance: ATEZOLIZUMAB
     Indication: CERVIX CANCER METASTATIC
     Dosage: LAST DOSE ADMINISTERED WAS 21/JAN/2018.?CYCLE= 21 DAYS
     Route: 042
     Dates: start: 20171201, end: 20180112

REACTIONS (1)
  - Pancreatitis [Not Recovered/Not Resolved]

NARRATIVE: CASE EVENT DATE: 20180227
